FAERS Safety Report 9500281 (Version 2)
Quarter: 2013Q3

REPORT INFORMATION
  Report Type: Spontaneous
  Country: US (occurrence: None)
  Receive Date: 20130903
  Receipt Date: 20130919
  Transmission Date: 20140515
  Serious: Yes (Other)
  Sender: FDA-Public Use
  Company Number: US-2013-2664

PATIENT
  Age: 75 Year
  Sex: Female

DRUGS (2)
  1. NAVELBINE [Suspect]
     Indication: BREAST CANCER METASTATIC
     Dates: start: 20090629, end: 20091019
  2. TYKERB [Suspect]
     Indication: BREAST CANCER METASTATIC
     Dates: start: 20090629, end: 20090908

REACTIONS (16)
  - Metastases to bone [None]
  - Malignant neoplasm progression [None]
  - Metastases to adrenals [None]
  - Metastases to liver [None]
  - Metastases to spleen [None]
  - Anxiety [None]
  - Lymphadenopathy mediastinal [None]
  - Device leakage [None]
  - Abdominal hernia [None]
  - Epistaxis [None]
  - Feeling hot [None]
  - Cellulitis [None]
  - Thrombocytopenia [None]
  - Refusal of treatment by patient [None]
  - Breast cancer [None]
  - Breast cancer metastatic [None]
